FAERS Safety Report 24274397 (Version 2)
Quarter: 2024Q3

REPORT INFORMATION
  Report Type: Spontaneous
  Country: NL (occurrence: NL)
  Receive Date: 20240902
  Receipt Date: 20240930
  Transmission Date: 20241017
  Serious: Yes (Other)
  Sender: ACCORD
  Company Number: NL-MLMSERVICE-20240814-PI161804-00165-2

PATIENT
  Age: 36 Year
  Sex: Male

DRUGS (3)
  1. GEMCITABINE [Suspect]
     Active Substance: GEMCITABINE
     Indication: Burkitt^s lymphoma stage IV
     Dosage: 1000 MG/M2 IV ONCE EVERY 28 DAYS, 1 COURSE
     Route: 042
     Dates: start: 20210520, end: 20210520
  2. IDELALISIB [Suspect]
     Active Substance: IDELALISIB
     Indication: Burkitt^s lymphoma stage IV
     Dosage: 150 MG ORALLY BID CONTINUOUSLY
     Route: 048
     Dates: start: 20210409
  3. DEXAMETHASONE [Suspect]
     Active Substance: DEXAMETHASONE
     Indication: Burkitt^s lymphoma stage IV
     Dosage: 40 MG ORALLY OD IN A SCHEDULE 4 DAYS ON, 4 DAYS OFF
     Route: 048
     Dates: start: 20210409

REACTIONS (2)
  - Bronchopulmonary aspergillosis [Unknown]
  - Off label use [Unknown]

NARRATIVE: CASE EVENT DATE: 20210528
